FAERS Safety Report 10352053 (Version 1)
Quarter: 2014Q3

REPORT INFORMATION
  Report Type: Spontaneous
  Country: US (occurrence: US)
  Receive Date: 20140730
  Receipt Date: 20140730
  Transmission Date: 20150326
  Serious: No
  Sender: FDA-Public Use
  Company Number: US-ABBVIE-13P-163-1179863-00

PATIENT
  Sex: Female

DRUGS (1)
  1. SYNTHROID [Suspect]
     Active Substance: LEVOTHYROXINE SODIUM
     Indication: HYPOTHYROIDISM

REACTIONS (9)
  - Fatigue [Unknown]
  - Drug ineffective [Unknown]
  - Depressed mood [Unknown]
  - Hypersomnia [Unknown]
  - Pertussis [Unknown]
  - Influenza [Unknown]
  - Nasopharyngitis [Unknown]
  - Unevaluable event [Unknown]
  - Bronchitis [Unknown]
